FAERS Safety Report 17010506 (Version 1)
Quarter: 2019Q4

REPORT INFORMATION
  Report Type: Spontaneous
  Country: HR (occurrence: HR)
  Receive Date: 20191108
  Receipt Date: 20191108
  Transmission Date: 20200122
  Serious: Yes (Other)
  Sender: FDA-Public Use
  Company Number: HR-ASTRAZENECA-2019SF55940

PATIENT
  Age: 48 Year
  Sex: Male

DRUGS (1)
  1. KVENTIAX [Suspect]
     Active Substance: QUETIAPINE FUMARATE
     Dosage: 4.5G UNKNOWN
     Route: 048
     Dates: start: 201908, end: 201908

REACTIONS (6)
  - Hypopnoea [Unknown]
  - Loss of consciousness [Unknown]
  - Suicide attempt [Unknown]
  - Coma [Unknown]
  - Unresponsive to stimuli [Unknown]
  - Intentional overdose [Unknown]

NARRATIVE: CASE EVENT DATE: 201908
